FAERS Safety Report 10383666 (Version 1)
Quarter: 2014Q1

REPORT INFORMATION
  Report Type: Spontaneous
  Country: US (occurrence: None)
  Receive Date: 20140306
  Receipt Date: 20140306
  Transmission Date: 20141002
  Serious: Yes (Hospitalization)
  Sender: FDA-Public Use
  Company Number: 163-21880-13050772

PATIENT
  Age: 76 Year
  Sex: Male

DRUGS (1)
  1. REVLIMID LENALIDOMIDE (CAPSULES) [Suspect]
     Indication: PLASMA CELL MYELOMA
     Route: 048

REACTIONS (1)
  - Food poisoning [None]
